FAERS Safety Report 5340176-5 (Version None)
Quarter: 2007Q2

REPORT INFORMATION
  Report Type: 
  Country: None (occurrence: None)
  Receive Date: 20070531
  Receipt Date: 20070530
  Transmission Date: 20071010
  Serious: Yes (Hospitalization, Other)
  Sender: FDA-Public Use
  Company Number: B0458645A

PATIENT
  Age: 12 Day
  Sex: Male

DRUGS (2)
  1. LAMOTRIGINE [Suspect]
     Route: 065
  2. LORAZEPAM [Suspect]

REACTIONS (2)
  - CONVULSION [None]
  - POISONING DELIBERATE [None]
